FAERS Safety Report 12206471 (Version 1)
Quarter: 2016Q1

REPORT INFORMATION
  Report Type: Spontaneous
  Country: US (occurrence: None)
  Receive Date: 20160323
  Receipt Date: 20160323
  Transmission Date: 20160526
  Serious: Yes (Other)
  Sender: FDA-Public Use
  Company Number: None

PATIENT
  Age: 58 Year
  Sex: Female

DRUGS (1)
  1. ENTOCORT [Suspect]
     Active Substance: BUDESONIDE
     Indication: CROHN^S DISEASE
     Dosage: (3MGX3) QAM ORALLY
     Route: 048
     Dates: start: 2006

REACTIONS (2)
  - Product substitution issue [None]
  - Myalgia [None]

NARRATIVE: CASE EVENT DATE: 2006
